FAERS Safety Report 19519715 (Version 1)
Quarter: 2021Q3

REPORT INFORMATION
  Report Type: Spontaneous
  Country: US (occurrence: US)
  Receive Date: 20210712
  Receipt Date: 20210712
  Transmission Date: 20211014
  Serious: Yes (Hospitalization)
  Sender: FDA-Public Use
  Company Number: US-LUPIN PHARMACEUTICALS INC.-2021-11470

PATIENT
  Age: 39 Year
  Sex: Male

DRUGS (8)
  1. FOSCARNET [Suspect]
     Active Substance: FOSCARNET
     Indication: NECROTISING HERPETIC RETINOPATHY
     Dosage: 2.4 MILLIGRAM (IN 0.1ML)
  2. VALACYCLOVIR [Suspect]
     Active Substance: VALACYCLOVIR HYDROCHLORIDE
     Indication: NECROTISING HERPETIC RETINOPATHY
     Dosage: 2 GRAM, QID
     Route: 048
  3. DORZOLAMIDE AND TIMOLOL [Suspect]
     Active Substance: DORZOLAMIDE\TIMOLOL
     Indication: NECROTISING HERPETIC RETINOPATHY
     Dosage: UNK
     Route: 047
  4. VALACYCLOVIR [Suspect]
     Active Substance: VALACYCLOVIR HYDROCHLORIDE
     Dosage: 2 GRAM, QID
     Route: 048
  5. ATROPINE. [Suspect]
     Active Substance: ATROPINE
     Indication: NECROTISING HERPETIC RETINOPATHY
     Dosage: UNK
     Route: 047
  6. ACYCLOVIR. [Suspect]
     Active Substance: ACYCLOVIR
     Indication: NECROTISING HERPETIC RETINOPATHY
     Dosage: 15 MILLIGRAM/KILOGRAM, TID
     Route: 042
  7. VALACYCLOVIR [Suspect]
     Active Substance: VALACYCLOVIR HYDROCHLORIDE
     Dosage: 2 GRAM, TID
     Route: 048
  8. METHYLPREDNISOLONE. [Suspect]
     Active Substance: METHYLPREDNISOLONE
     Indication: NECROTISING HERPETIC RETINOPATHY
     Dosage: 250 MILLIGRAM, QID (INJECTION)
     Route: 042

REACTIONS (1)
  - Drug ineffective [Unknown]
